FAERS Safety Report 7781445-9 (Version None)
Quarter: 2011Q3

REPORT INFORMATION
  Report Type: 
  Country: None (occurrence: None)
  Receive Date: 20110927
  Receipt Date: 20110913
  Transmission Date: 20111222
  Serious: Yes (Other)
  Sender: FDA-Public Use
  Company Number: PHHY2011BR82341

PATIENT
  Age: 65 Year
  Sex: Female

DRUGS (7)
  1. ALDOMET [Suspect]
  2. METFORMIN HCL [Suspect]
  3. ASPIRIN [Suspect]
  4. GLICLAZIDE [Suspect]
  5. FENOFIBRATE [Suspect]
  6. INDAPAMIDE [Suspect]
  7. EXFORGE [Suspect]

REACTIONS (10)
  - VENTRICULAR HYPERTROPHY [None]
  - CAROTID INTIMA-MEDIA THICKNESS INCREASED [None]
  - BLOOD PRESSURE INADEQUATELY CONTROLLED [None]
  - BLOOD PRESSURE SYSTOLIC INCREASED [None]
  - RALES [None]
  - DIASTOLIC DYSFUNCTION [None]
  - ABDOMINAL DISTENSION [None]
  - ALBUMINURIA [None]
  - BODY MASS INDEX INCREASED [None]
  - OEDEMA PERIPHERAL [None]
